FAERS Safety Report 11295529 (Version 1)
Quarter: 2015Q3

REPORT INFORMATION
  Report Type: Spontaneous
  Country: US (occurrence: US)
  Receive Date: 20150722
  Receipt Date: 20150722
  Transmission Date: 20151125
  Serious: No
  Sender: FDA-Public Use
  Company Number: US-ELI_LILLY_AND_COMPANY-US200901000609

PATIENT
  Age: 69 Year
  Sex: Female

DRUGS (2)
  1. LASIX [Concomitant]
     Active Substance: FUROSEMIDE
     Dosage: UNK, UNKNOWN
     Route: 065
  2. EVISTA [Suspect]
     Active Substance: RALOXIFENE HYDROCHLORIDE
     Indication: OSTEOPOROSIS POSTMENOPAUSAL
     Dosage: 60 MG, DAILY (1/D)
     Route: 065
     Dates: start: 200210

REACTIONS (3)
  - Alopecia [Not Recovered/Not Resolved]
  - Hyperhidrosis [Unknown]
  - Skin odour abnormal [Unknown]

NARRATIVE: CASE EVENT DATE: 2007
